FAERS Safety Report 10631621 (Version 3)
Quarter: 2015Q1

REPORT INFORMATION
  Report Type: Report from Study
  Country: CN (occurrence: CN)
  Receive Date: 20141205
  Receipt Date: 20150105
  Transmission Date: 20150720
  Serious: Yes (Other)
  Sender: FDA-Public Use
  Company Number: PHHY2014CN153259

PATIENT
  Age: 35 Year
  Sex: Male
  Weight: 70 kg

DRUGS (2)
  1. VAA489A [Suspect]
     Active Substance: AMLODIPINE\VALSARTAN
     Dosage: 2 DF, QD
     Route: 048
     Dates: start: 20140928
  2. VAA489A [Suspect]
     Active Substance: AMLODIPINE\VALSARTAN
     Indication: HYPERTENSION
     Dosage: 1 DF, QD
     Route: 048
     Dates: start: 201107

REACTIONS (1)
  - Hypertensive nephropathy [Recovered/Resolved]

NARRATIVE: CASE EVENT DATE: 20140928
